FAERS Safety Report 19770893 (Version 2)
Quarter: 2021Q3

REPORT INFORMATION
  Report Type: Spontaneous
  Country: FR (occurrence: FR)
  Receive Date: 20210831
  Receipt Date: 20210831
  Transmission Date: 20211014
  Serious: Yes (Other)
  Sender: FDA-Public Use
  Company Number: FR-ELI_LILLY_AND_COMPANY-FR202108010703

PATIENT
  Sex: Male

DRUGS (1)
  1. EMGALITY [Suspect]
     Active Substance: GALCANEZUMAB-GNLM
     Indication: ANGIOPATHY
     Dosage: 2 DOSAGE FORM, SINGLE
     Route: 065
     Dates: start: 202108

REACTIONS (2)
  - Metastasis [Unknown]
  - Off label use [Unknown]
